FAERS Safety Report 6899377-7 (Version None)
Quarter: 2010Q3

REPORT INFORMATION
  Report Type: 
  Country: None (occurrence: None)
  Receive Date: 20100803
  Receipt Date: 20090428
  Transmission Date: 20110219
  Serious: Yes (Other)
  Sender: FDA-Public Use
  Company Number: US-PFIZER INC-2009183371

PATIENT
  Sex: Female

DRUGS (1)
  1. CORTEF [Suspect]

REACTIONS (1)
  - CARDIAC FAILURE CONGESTIVE [None]
